FAERS Safety Report 23290866 (Version 2)
Quarter: 2024Q3

REPORT INFORMATION
  Report Type: Report from Study
  Country: CA (occurrence: CA)
  Receive Date: 20231213
  Receipt Date: 20240822
  Transmission Date: 20241017
  Serious: Yes (Hospitalization)
  Sender: BIOGEN
  Company Number: CA-BIOGEN-2023BI01240105

PATIENT
  Sex: Male

DRUGS (1)
  1. SPINRAZA [Suspect]
     Active Substance: NUSINERSEN
     Indication: Spinal muscular atrophy
     Dosage: 0DAYS, 14DAYS,14DAYS, 30 DAYS, EVERY 4 MONTHS
     Route: 050
     Dates: start: 20190827

REACTIONS (1)
  - Bladder disorder [Unknown]
